FAERS Safety Report 8531492-4 (Version None)
Quarter: 2012Q3

REPORT INFORMATION
  Report Type: 
  Country: None (occurrence: None)
  Receive Date: 20120723
  Receipt Date: 20120713
  Transmission Date: 20120928
  Serious: Yes (Hospitalization)
  Sender: FDA-Public Use
  Company Number: US-ACTELION-A-US2011-44673

PATIENT

DRUGS (4)
  1. PLAVIX [Concomitant]
  2. COUMADIN [Concomitant]
  3. TRACLEER [Suspect]
     Indication: PULMONARY ARTERIAL HYPERTENSION
     Dosage: UNK
     Route: 048
  4. ASPIRIN [Concomitant]

REACTIONS (5)
  - DIALYSIS [None]
  - BLOOD POTASSIUM DECREASED [None]
  - BLOOD POTASSIUM INCREASED [None]
  - PAIN [None]
  - GAIT DISTURBANCE [None]
